FAERS Safety Report 11158199 (Version 2)
Quarter: 2015Q2

REPORT INFORMATION
  Report Type: Report from Study
  Country: US (occurrence: US)
  Receive Date: 20150603
  Receipt Date: 20150617
  Transmission Date: 20150821
  Serious: Yes (Other)
  Sender: FDA-Public Use
  Company Number: US-BIOGENIDEC-2015BI075252

PATIENT
  Age: 56 Year
  Sex: Female

DRUGS (1)
  1. TYSABRI [Suspect]
     Active Substance: NATALIZUMAB
     Indication: MULTIPLE SCLEROSIS
     Route: 042
     Dates: start: 20130327

REACTIONS (4)
  - Central nervous system lesion [Not Recovered/Not Resolved]
  - Balance disorder [Unknown]
  - Tremor [Unknown]
  - Cerebral atrophy [Not Recovered/Not Resolved]

NARRATIVE: CASE EVENT DATE: 20150507
